FAERS Safety Report 13267690 (Version 1)
Quarter: 2017Q1

REPORT INFORMATION
  Report Type: Spontaneous
  Country: US (occurrence: US)
  Receive Date: 20170223
  Receipt Date: 20170223
  Transmission Date: 20170428
  Serious: Yes (Life-Threatening, Hospitalization)
  Sender: FDA-Public Use
  Company Number: None

PATIENT
  Age: 60 Year
  Sex: Male
  Weight: 135 kg

DRUGS (11)
  1. ATORVASTATIN CALCIUM. [Concomitant]
     Active Substance: ATORVASTATIN CALCIUM
  2. TIOTROPIUM [Concomitant]
     Active Substance: TIOTROPIUM
  3. ADCIRCA [Suspect]
     Active Substance: TADALAFIL
     Indication: PRODUCT USED FOR UNKNOWN INDICATION
     Route: 048
     Dates: start: 20160511, end: 20170220
  4. ASPIRIN. [Concomitant]
     Active Substance: ASPIRIN
  5. BUDESONIDE/FORMOTER [Concomitant]
  6. ACETAMINOPHEN. [Concomitant]
     Active Substance: ACETAMINOPHEN
  7. NICOTINE. [Concomitant]
     Active Substance: NICOTINE
  8. IBUPROFEN. [Concomitant]
     Active Substance: IBUPROFEN
  9. ALBUTEROL. [Concomitant]
     Active Substance: ALBUTEROL
  10. OXYCODONE [Concomitant]
     Active Substance: OXYCODONE
  11. FUROSEMIDE. [Concomitant]
     Active Substance: FUROSEMIDE

REACTIONS (3)
  - Influenza [None]
  - Dyspnoea [None]
  - Acute respiratory failure [None]

NARRATIVE: CASE EVENT DATE: 20170221
